FAERS Safety Report 7070011-9 (Version None)
Quarter: 2010Q4

REPORT INFORMATION
  Report Type: 
  Country: None (occurrence: None)
  Receive Date: 20101028
  Receipt Date: 20100719
  Transmission Date: 20110411
  Serious: No
  Sender: FDA-Public Use
  Company Number: US-WYE-H16450910

PATIENT
  Age: 55 Year
  Sex: Female
  Weight: 72.19 kg

DRUGS (2)
  1. ADVIL COLD AND SINUS [Suspect]
     Indication: SINUS HEADACHE
     Dosage: 2 LIQUI-GELS ONE TIME
     Route: 048
     Dates: start: 20100715, end: 20100715
  2. SYNTHROID [Concomitant]

REACTIONS (2)
  - DYSPEPSIA [None]
  - NAUSEA [None]
